FAERS Safety Report 5363519-5 (Version None)
Quarter: 2007Q2

REPORT INFORMATION
  Report Type: 
  Country: None (occurrence: None)
  Receive Date: 20070620
  Receipt Date: 20060830
  Transmission Date: 20071010
  Serious: Yes (Other)
  Sender: FDA-Public Use
  Company Number: US-BRISTOL-MYERS SQUIBB COMPANY-13463435

PATIENT
  Age: 45 Year
  Sex: Female
  Weight: 113 kg

DRUGS (4)
  1. MONOPRIL [Suspect]
     Indication: HYPERTENSION
     Dosage: STARTED TAKING 40 MG DAILY APPROX. 10 YEARS AGO, INCREASED TO 60 MG DAILY LAST YEAR
  2. MOTRIN [Concomitant]
  3. TYLENOL W/ CODEINE [Concomitant]
  4. MULTI-VITAMIN [Concomitant]

REACTIONS (5)
  - ABDOMINAL PAIN [None]
  - ANGIOEDEMA [None]
  - ARTHROPATHY [None]
  - DRUG HYPERSENSITIVITY [None]
  - FATIGUE [None]
